FAERS Safety Report 25594108 (Version 1)
Quarter: 2025Q3

REPORT INFORMATION
  Report Type: Spontaneous
  Country: EU (occurrence: EU)
  Receive Date: 20250723
  Receipt Date: 20250723
  Transmission Date: 20251021
  Serious: Yes (Death, Other)
  Sender: CELLTRION
  Company Number: None

PATIENT

DRUGS (7)
  1. RITUXIMAB [Suspect]
     Active Substance: RITUXIMAB
     Indication: Stiff person syndrome
     Route: 042
     Dates: start: 20170309, end: 20250219
  2. SODIUM CHLORIDE [Suspect]
     Active Substance: SODIUM CHLORIDE
     Indication: Product used for unknown indication
     Route: 042
     Dates: start: 20170309, end: 20250219
  3. DONEPEZIL KRKA [Concomitant]
     Indication: Memory impairment
     Route: 048
     Dates: start: 2025
  4. ASPIRIN [Concomitant]
     Active Substance: ASPIRIN
     Indication: Cerebral infarction
     Route: 048
     Dates: start: 2019
  5. CLONAZEPAM [Concomitant]
     Active Substance: CLONAZEPAM
     Indication: Stiff person syndrome
     Route: 048
     Dates: start: 2016
  6. SERTRALINE [Concomitant]
     Active Substance: SERTRALINE HYDROCHLORIDE
     Indication: Depression
     Route: 048
     Dates: start: 202108
  7. VENLAFAXINE [Concomitant]
     Active Substance: VENLAFAXINE HYDROCHLORIDE
     Indication: Depression
     Route: 048
     Dates: start: 202410

REACTIONS (2)
  - Organising pneumonia [Fatal]
  - Intentional product use issue [Unknown]

NARRATIVE: CASE EVENT DATE: 20250219
